FAERS Safety Report 9013903 (Version 1)
Quarter: 2013Q1

REPORT INFORMATION
  Report Type: Spontaneous
  Country: US (occurrence: US)
  Receive Date: 20130115
  Receipt Date: 20130115
  Transmission Date: 20140127
  Serious: Yes (Other)
  Sender: FDA-Public Use
  Company Number: US-009507513-1301USA003565

PATIENT
  Age: 52 Year
  Sex: Female

DRUGS (29)
  1. SINGULAIR [Suspect]
     Indication: PRODUCT USED FOR UNKNOWN INDICATION
     Dosage: UNKNOWN
  2. SINGULAIR [Suspect]
     Indication: RHEUMATOID ARTHRITIS
  3. FOLIC ACID [Suspect]
     Route: 048
  4. REMICADE [Suspect]
     Route: 042
  5. REMICADE [Suspect]
     Dosage: LOADING DOSE
     Route: 042
  6. VERAPAMIL [Suspect]
     Dosage: UNK
  7. ASPIRIN [Suspect]
  8. ENALAPRIL MALEATE [Suspect]
  9. CALCIUM (UNSPECIFIED) (+) VITAMIN D (UNSPECIFIED) [Suspect]
  10. XANAX [Suspect]
  11. TOPAMAX [Suspect]
  12. LODINE [Suspect]
  13. SOMA [Suspect]
  14. TIZANIDINE HYDROCHLORIDE [Suspect]
  15. DARVON [Suspect]
  16. SULFASALAZINE [Suspect]
     Route: 048
  17. METHOTREXATE [Concomitant]
     Route: 058
  18. PROZAC [Suspect]
  19. SYNTHROID [Suspect]
     Route: 048
  20. VESICARE [Suspect]
  21. REQUIP [Suspect]
  22. BUTALBITAL [Suspect]
  23. PROMETHAZINE [Suspect]
  24. HYDROCODONE BITARTRATE (+) IBUPROFEN [Suspect]
  25. FIORINAL [Suspect]
  26. PHENERGAN [Suspect]
  27. VOLTAREN [Suspect]
     Route: 061
  28. METHOTREXATE [Suspect]
     Route: 048
  29. NEURONTIN [Suspect]
     Route: 048

REACTIONS (17)
  - Asthma [Unknown]
  - Hypertension [Unknown]
  - Supraventricular tachycardia [Unknown]
  - Laceration [Unknown]
  - Low density lipoprotein increased [Unknown]
  - Migraine [Unknown]
  - Orthostatic hypotension [Unknown]
  - Scab [Unknown]
  - Sleep apnoea syndrome [Unknown]
  - Headache [Unknown]
  - Impaired healing [Unknown]
  - Chest pain [Unknown]
  - Dizziness [Unknown]
  - Drug dose omission [Unknown]
  - Drug hypersensitivity [Unknown]
  - Dyspnoea [Unknown]
  - Fall [Unknown]
